FAERS Safety Report 19618580 (Version 3)
Quarter: 2021Q3

REPORT INFORMATION
  Report Type: Report from Study
  Country: JP (occurrence: JP)
  Receive Date: 20210728
  Receipt Date: 20210915
  Transmission Date: 20211014
  Serious: Yes (Other)
  Sender: FDA-Public Use
  Company Number: NVSJ2021JP007811

PATIENT
  Age: 18 Year
  Sex: Male

DRUGS (9)
  1. FILGRASTIM BS [Concomitant]
     Active Substance: FILGRASTIM
     Indication: PRODUCT USED FOR UNKNOWN INDICATION
     Dosage: 600 UG
     Route: 065
     Dates: start: 20190916, end: 20190926
  2. RED BLOOD CELLS [Concomitant]
     Active Substance: HUMAN RED BLOOD CELL
     Dosage: TOTAL DOSE 1200 ML, THREE TIMES A MONTH
     Route: 065
     Dates: start: 20190904, end: 20191001
  3. PLATELETS [Concomitant]
     Active Substance: HUMAN PLATELET, ALLOGENIC
     Indication: PRODUCT USED FOR UNKNOWN INDICATION
     Dosage: TOTAL DOSE 2240 ML, EIGHT TIMES A MONTH
     Route: 065
     Dates: start: 20190807, end: 20190903
  4. PLATELETS [Concomitant]
     Active Substance: HUMAN PLATELET, ALLOGENIC
     Dosage: TOTAL DOSE 1400 ML, FIVE TIMES A MONTH
     Route: 065
     Dates: start: 20190904, end: 20191001
  5. REVOLADE TAB [Suspect]
     Active Substance: ELTROMBOPAG OLAMINE
     Dosage: 50 MG
     Route: 048
     Dates: start: 20191011, end: 20191024
  6. RED BLOOD CELLS [Concomitant]
     Active Substance: HUMAN RED BLOOD CELL
     Indication: PRODUCT USED FOR UNKNOWN INDICATION
     Dosage: TOTAL DOSE 1200 ML, THREE TIMES A MONTH
     Route: 065
     Dates: start: 20190807, end: 20190903
  7. REVOLADE TAB [Suspect]
     Active Substance: ELTROMBOPAG OLAMINE
     Dosage: 25 MG
     Route: 048
     Dates: start: 20191025, end: 20191217
  8. NEORAL [Suspect]
     Active Substance: CYCLOSPORINE
     Indication: PRODUCT USED FOR UNKNOWN INDICATION
     Dosage: 375 MG
     Route: 048
     Dates: start: 20190821
  9. REVOLADE TAB [Suspect]
     Active Substance: ELTROMBOPAG OLAMINE
     Indication: APLASTIC ANAEMIA
     Dosage: 75 MG
     Route: 048
     Dates: start: 20190904, end: 20191010

REACTIONS (2)
  - Transaminases increased [Recovered/Resolved]
  - Epstein-Barr virus infection reactivation [Recovered/Resolved]

NARRATIVE: CASE EVENT DATE: 20190909
